FAERS Safety Report 25205289 (Version 2)
Quarter: 2025Q2

REPORT INFORMATION
  Report Type: Report from Study
  Country: IT (occurrence: IT)
  Receive Date: 20250417
  Receipt Date: 20250423
  Transmission Date: 20250717
  Serious: Yes (Life-Threatening, Hospitalization)
  Sender: ABBVIE
  Company Number: IT-JNJFOC-20250418492

PATIENT
  Age: 64 Year
  Sex: Male
  Weight: 71 kg

DRUGS (18)
  1. IBRUTINIB [Suspect]
     Active Substance: IBRUTINIB
     Indication: Chronic lymphocytic leukaemia
     Route: 048
     Dates: start: 20250313, end: 20250327
  2. DELORAZEPAM [Concomitant]
     Active Substance: DELORAZEPAM
     Indication: Unevaluable event
     Route: 048
  3. THIOCOLCHICOSIDE [Concomitant]
     Active Substance: THIOCOLCHICOSIDE
     Indication: Unevaluable event
     Route: 030
  4. NALOXONE HYDROCHLORIDE\OXYCODONE HYDROCHLORIDE [Concomitant]
     Active Substance: NALOXONE HYDROCHLORIDE\OXYCODONE HYDROCHLORIDE
     Indication: Unevaluable event
     Route: 048
  5. DEXAMETHASONE [Concomitant]
     Active Substance: DEXAMETHASONE
     Indication: Unevaluable event
     Route: 030
     Dates: start: 20250319, end: 20250324
  6. MAGNESIUM PIDOLATE [Concomitant]
     Active Substance: MAGNESIUM PIDOLATE
     Indication: Unevaluable event
     Route: 048
  7. ATORVASTATIN [Concomitant]
     Active Substance: ATORVASTATIN
     Indication: Unevaluable event
     Route: 048
  8. OMEPRAZOLE [Concomitant]
     Active Substance: OMEPRAZOLE
     Indication: Prophylaxis
     Route: 048
  9. NEBIVOLOL [Concomitant]
     Active Substance: NEBIVOLOL
     Indication: Unevaluable event
     Route: 048
  10. PREDNISONE [Concomitant]
     Active Substance: PREDNISONE
     Indication: Unevaluable event
     Route: 048
  11. ENOXAPARIN SODIUM [Concomitant]
     Active Substance: ENOXAPARIN SODIUM
     Indication: Adverse event
     Route: 058
     Dates: start: 20250403
  12. CEFOTAXIME [Concomitant]
     Active Substance: CEFOTAXIME SODIUM
     Indication: Adverse event
     Route: 042
     Dates: start: 20250403
  13. WARFARIN [Concomitant]
     Active Substance: WARFARIN
     Indication: Adverse event
     Route: 048
     Dates: start: 20250403
  14. CEFTRIAXONE [Concomitant]
     Active Substance: CEFTRIAXONE
     Indication: Adverse event
     Route: 042
     Dates: start: 20250325
  15. ALLOPURINOL [Concomitant]
     Active Substance: ALLOPURINOL
     Indication: Unevaluable event
     Dosage: QD
     Route: 048
     Dates: start: 20250312
  16. Dihydrocodeine;Pentetrazol [Concomitant]
     Indication: Adverse event
     Route: 048
     Dates: start: 20250403, end: 20250403
  17. ETORICOXIB [Concomitant]
     Active Substance: ETORICOXIB
     Indication: Unevaluable event
     Route: 048
  18. TRAMADOL [Concomitant]
     Active Substance: TRAMADOL
     Indication: Unevaluable event
     Route: 048

REACTIONS (1)
  - Heart valve replacement [Recovered/Resolved]

NARRATIVE: CASE EVENT DATE: 20250401
